FAERS Safety Report 7399244-9 (Version None)
Quarter: 2011Q2

REPORT INFORMATION
  Report Type: 
  Country: None (occurrence: None)
  Receive Date: 20110407
  Receipt Date: 20110405
  Transmission Date: 20111010
  Serious: Yes (Other)
  Sender: FDA-Public Use
  Company Number: JP-PFIZER INC-2011075435

PATIENT
  Age: 27 Year
  Sex: Male

DRUGS (1)
  1. ZITHROMAX [Suspect]
     Indication: URETHRITIS
     Dosage: 2 G, SINGLE
     Route: 048
     Dates: start: 20110323, end: 20110323

REACTIONS (3)
  - MELAENA [None]
  - CLOSTRIDIUM TEST POSITIVE [None]
  - DIARRHOEA [None]
